FAERS Safety Report 7210114-9 (Version None)
Quarter: 2011Q1

REPORT INFORMATION
  Report Type: 
  Country: None (occurrence: None)
  Receive Date: 20110105
  Receipt Date: 20101228
  Transmission Date: 20110831
  Serious: Yes (Other)
  Sender: FDA-Public Use
  Company Number: JP-MERCK-1012USA04215

PATIENT
  Age: 80 Year
  Sex: Female

DRUGS (2)
  1. DOGMATYL [Suspect]
     Route: 048
  2. PEPCID RPD [Suspect]
     Route: 048

REACTIONS (2)
  - BRADYCARDIA [None]
  - SICK SINUS SYNDROME [None]
